FAERS Safety Report 13890717 (Version 1)
Quarter: 2017Q3

REPORT INFORMATION
  Report Type: Spontaneous
  Country: US (occurrence: US)
  Receive Date: 20170822
  Receipt Date: 20170822
  Transmission Date: 20171127
  Serious: No
  Sender: FDA-Public Use
  Company Number: US-ELI_LILLY_AND_COMPANY-US201708008112

PATIENT
  Age: 12 Year
  Sex: Female

DRUGS (3)
  1. ATOMOXETINE HYDROCHLORIDE 40MG [Suspect]
     Active Substance: ATOMOXETINE HYDROCHLORIDE
     Dosage: 40 MG, UNKNOWN
     Route: 065
  2. ATOMOXETINE HYDROCHLORIDE 40MG [Suspect]
     Active Substance: ATOMOXETINE HYDROCHLORIDE
     Indication: ATTENTION DEFICIT/HYPERACTIVITY DISORDER
     Dosage: UNK, UNKNOWN
     Route: 065
  3. ATOMOXETINE HYDROCHLORIDE 40MG [Suspect]
     Active Substance: ATOMOXETINE HYDROCHLORIDE
     Dosage: 40 MG, UNK
     Route: 065

REACTIONS (4)
  - Nausea [Unknown]
  - Feeling hot [Unknown]
  - Dizziness [Unknown]
  - Headache [Unknown]
